FAERS Safety Report 17725835 (Version 8)
Quarter: 2021Q1

REPORT INFORMATION
  Report Type: Report from Study
  Country: CA (occurrence: CA)
  Receive Date: 20200429
  Receipt Date: 20210318
  Transmission Date: 20210419
  Serious: Yes (Other)
  Sender: FDA-Public Use
  Company Number: PHHY2018CA080020

PATIENT
  Age: 79 Year
  Sex: Female

DRUGS (5)
  1. BISOPROLOL [Concomitant]
     Active Substance: BISOPROLOL
     Indication: ATRIAL FIBRILLATION
     Dosage: UNK UNK, QD
     Route: 048
  2. SANDOSTATIN LAR DEPOT [Suspect]
     Active Substance: OCTREOTIDE ACETATE
  3. SANDOSTATIN LAR DEPOT [Suspect]
     Active Substance: OCTREOTIDE ACETATE
     Indication: CARCINOID TUMOUR
     Dosage: 20 MG, QMO (EVERY 4 WEEKS)
     Route: 030
     Dates: start: 20180201
  4. SANDOSTATIN LAR DEPOT [Suspect]
     Active Substance: OCTREOTIDE ACETATE
  5. XARELTO [Concomitant]
     Active Substance: RIVAROXABAN
     Indication: ATRIAL FIBRILLATION
     Dosage: UNK, QD
     Route: 048

REACTIONS (22)
  - Abdominal pain lower [Not Recovered/Not Resolved]
  - Cardiac failure [Unknown]
  - Cardiac disorder [Unknown]
  - Heart rate decreased [Unknown]
  - Dyspnoea exertional [Unknown]
  - Blood pressure systolic increased [Unknown]
  - Urinary tract infection [Recovered/Resolved]
  - Vertigo [Unknown]
  - Blood pressure increased [Unknown]
  - Abdominal discomfort [Unknown]
  - Joint swelling [Unknown]
  - Eye contusion [Unknown]
  - Fatigue [Unknown]
  - Peripheral swelling [Unknown]
  - Macular degeneration [Not Recovered/Not Resolved]
  - Cardiomegaly [Unknown]
  - Abdominal distension [Unknown]
  - Hypotension [Unknown]
  - Abdominal tenderness [Not Recovered/Not Resolved]
  - Ocular hyperaemia [Unknown]
  - Feeling abnormal [Unknown]
  - Dizziness [Unknown]

NARRATIVE: CASE EVENT DATE: 2018
